FAERS Safety Report 20922368 (Version 1)
Quarter: 2022Q2

REPORT INFORMATION
  Report Type: Spontaneous
  Country: US (occurrence: None)
  Receive Date: 20220607
  Receipt Date: 20220607
  Transmission Date: 20220721
  Serious: No
  Sender: FDA-Public Use
  Company Number: 2022A205154

PATIENT
  Age: 68 Year
  Sex: Female

DRUGS (1)
  1. BYDUREON BCISE [Suspect]
     Active Substance: EXENATIDE
     Indication: Type 2 diabetes mellitus
     Route: 058
     Dates: start: 20220528

REACTIONS (3)
  - Injection site haemorrhage [Recovered/Resolved]
  - Incorrect dose administered by product [Not Recovered/Not Resolved]
  - Device defective [Unknown]

NARRATIVE: CASE EVENT DATE: 20220528
